FAERS Safety Report 6502569-X (Version None)
Quarter: 2009Q4

REPORT INFORMATION
  Report Type: 
  Country: None (occurrence: None)
  Receive Date: 20091217
  Receipt Date: 20091216
  Transmission Date: 20100525
  Serious: No
  Sender: FDA-Public Use
  Company Number: US-ASTRAZENECA-2009UW03751

PATIENT
  Age: 730 Month
  Sex: Male
  Weight: 83.9 kg

DRUGS (5)
  1. SEROQUEL [Suspect]
     Indication: SLEEP DISORDER
     Route: 048
     Dates: start: 20050401, end: 20070201
  2. WELLBUTRIN [Concomitant]
     Indication: DEPRESSION
     Dates: start: 20040101, end: 20090101
  3. LEXAPRO [Concomitant]
     Indication: DEPRESSION
     Dates: start: 20040101, end: 20090101
  4. TRAZODONE HCL [Concomitant]
     Indication: DEPRESSION
     Dates: start: 20080101, end: 20090101
  5. LOVASTATIN [Concomitant]
     Indication: HYPERLIPIDAEMIA

REACTIONS (2)
  - OBESITY [None]
  - TYPE 2 DIABETES MELLITUS [None]
